FAERS Safety Report 6832896-8 (Version None)
Quarter: 2010Q3

REPORT INFORMATION
  Report Type: 
  Country: None (occurrence: None)
  Receive Date: 20100712
  Receipt Date: 20100702
  Transmission Date: 20110219
  Serious: Yes (Other)
  Sender: FDA-Public Use
  Company Number: GR-ABBOTT-10P-066-0651329-00

PATIENT
  Sex: Female

DRUGS (2)
  1. HUMIRA [Suspect]
     Indication: RHEUMATOID ARTHRITIS
     Route: 058
     Dates: start: 20100528, end: 20100528
  2. ARAVA [Concomitant]
     Indication: RHEUMATOID ARTHRITIS

REACTIONS (4)
  - DERMATITIS ALLERGIC [None]
  - LIP SWELLING [None]
  - LOCAL SWELLING [None]
  - SWOLLEN TONGUE [None]
